FAERS Safety Report 8317571-5 (Version None)
Quarter: 2012Q2

REPORT INFORMATION
  Report Type: 
  Country: None (occurrence: None)
  Receive Date: 20120427
  Receipt Date: 20110520
  Transmission Date: 20120825
  Serious: No
  Sender: FDA-Public Use
  Company Number: US-GLAXOSMITHKLINE-A0928359A

PATIENT
  Age: 48 Year
  Sex: Female

DRUGS (6)
  1. IMITREX INJECTION [Concomitant]
  2. ZOFRAN [Suspect]
     Indication: PROPHYLAXIS OF NAUSEA AND VOMITING
     Route: 065
     Dates: start: 20100901
  3. TRAZODONE HCL [Concomitant]
  4. MULTI-VITAMIN [Concomitant]
  5. BUTALBITAL [Concomitant]
  6. CYMBALTA [Concomitant]

REACTIONS (1)
  - DRUG INEFFECTIVE [None]
